FAERS Safety Report 19741059 (Version 1)
Quarter: 2021Q3

REPORT INFORMATION
  Report Type: Spontaneous
  Country: US (occurrence: US)
  Receive Date: 20210824
  Receipt Date: 20210824
  Transmission Date: 20211014
  Serious: No
  Sender: FDA-Public Use
  Company Number: US-ASTRAZENECA-2021A650593

PATIENT
  Weight: 62.6 kg

DRUGS (4)
  1. SPIRIVA [Concomitant]
     Active Substance: TIOTROPIUM BROMIDE MONOHYDRATE
  2. ALBUTEROL. [Concomitant]
     Active Substance: ALBUTEROL
  3. FLOVENT [Concomitant]
     Active Substance: FLUTICASONE PROPIONATE
  4. SYMBICORT [Suspect]
     Active Substance: BUDESONIDE\FORMOTEROL FUMARATE DIHYDRATE
     Indication: CHRONIC OBSTRUCTIVE PULMONARY DISEASE
     Dosage: 160/4.5, 2 PUFFS, TWO TIMES A DAY
     Route: 055

REACTIONS (9)
  - Nasal polyps [Recovered/Resolved]
  - Blood pressure measurement [Recovered/Resolved]
  - Parosmia [Recovered/Resolved]
  - Dyspepsia [Recovered/Resolved]
  - Arthritis [Recovered/Resolved]
  - Wrong technique in product usage process [Unknown]
  - Muscle spasms [Not Recovered/Not Resolved]
  - Taste disorder [Recovered/Resolved]
  - Arterial disorder [Unknown]
